FAERS Safety Report 17985360 (Version 1)
Quarter: 2020Q3

REPORT INFORMATION
  Report Type: Spontaneous
  Country: ES (occurrence: ES)
  Receive Date: 20200706
  Receipt Date: 20200706
  Transmission Date: 20201103
  Serious: Yes (Hospitalization, Disabling)
  Sender: FDA-Public Use
  Company Number: ES-ASTRAZENECA-2020SE85040

PATIENT
  Age: 70 Year
  Sex: Male
  Weight: 89 kg

DRUGS (6)
  1. EBYMECT [Suspect]
     Active Substance: DAPAGLIFLOZIN PROPANEDIOL\METFORMIN HYDROCHLORIDE
     Indication: TYPE 2 DIABETES MELLITUS
     Route: 048
     Dates: start: 20181210
  2. ADIRO [Concomitant]
     Active Substance: ASPIRIN
     Indication: MYOCARDIAL ISCHAEMIA
     Dates: start: 20181210
  3. LOBIVON [Concomitant]
     Active Substance: NEBIVOLOL HYDROCHLORIDE
     Indication: HYPERTENSION
     Dosage: A QUARTER OF A TABLET EVERY DAY
     Dates: start: 20200207
  4. TRANXILIUM [Concomitant]
     Active Substance: CLORAZEPATE DIPOTASSIUM
     Indication: DEPRESSION
     Dosage: 1 CAPSULE EVERY DAY
     Dates: start: 20180620
  5. TELMISARTAN + AMLODIPINE [Concomitant]
     Indication: HYPERTENSION
     Dosage: 1 TABLET EVERY DAY.
     Dates: start: 20180620
  6. ATORVASTATIN [Concomitant]
     Active Substance: ATORVASTATIN
     Indication: TYPE IIA HYPERLIPIDAEMIA
     Dates: start: 20190102

REACTIONS (2)
  - Urinary tract infection [Recovering/Resolving]
  - Leg amputation [Recovered/Resolved with Sequelae]

NARRATIVE: CASE EVENT DATE: 20190930
